FAERS Safety Report 19234149 (Version 1)
Quarter: 2021Q2

REPORT INFORMATION
  Report Type: Spontaneous
  Country: RU (occurrence: RU)
  Receive Date: 20210508
  Receipt Date: 20210508
  Transmission Date: 20210717
  Serious: Yes (Other)
  Sender: FDA-Public Use
  Company Number: RU-AMGEN-RUSSP2021067078

PATIENT
  Age: 31 Year
  Sex: Female
  Weight: 71 kg

DRUGS (17)
  1. POLYMYXIN [Concomitant]
     Active Substance: POLYMYXIN
     Dosage: UNK UNK, BID (2 MILLION UNITS BY INHALATION 2 TIMES A DAY)
     Dates: start: 20140314, end: 20140323
  2. PIPERACILLIN. [Concomitant]
     Active Substance: PIPERACILLIN SODIUM
     Dosage: 4500 MILLIGRAM, QID
     Route: 042
     Dates: start: 20140328, end: 20140405
  3. CEFTRIAXONE. [Concomitant]
     Active Substance: CEFTRIAXONE
     Dosage: UNK
  4. PIPERACILLIN. [Concomitant]
     Active Substance: PIPERACILLIN SODIUM
     Indication: ANTIBIOTIC PROPHYLAXIS
     Dosage: 4500 MG/DL, TID
     Route: 042
     Dates: start: 20140306, end: 20140308
  5. CEFTAROLINE FOSAMIL [Concomitant]
     Active Substance: CEFTAROLINE FOSAMIL
     Indication: ANTIBIOTIC PROPHYLAXIS
     Dosage: 600 MILLIGRAM, BID
     Route: 042
     Dates: start: 20140306
  6. FILGRASTIM [Suspect]
     Active Substance: FILGRASTIM
     Indication: PROPHYLAXIS
     Dosage: UNK UNK, QD
     Route: 065
     Dates: start: 20140303
  7. TAZOBACTAM [Concomitant]
     Active Substance: TAZOBACTAM
     Indication: ANTIBIOTIC PROPHYLAXIS
     Dosage: 4500 MILLIGRAM, TID
     Route: 042
     Dates: start: 20140306, end: 20140308
  8. COTRIMOXAZOLE [Concomitant]
     Active Substance: SULFAMETHOXAZOLE\TRIMETHOPRIM
     Indication: ANTIBIOTIC PROPHYLAXIS
     Dosage: 480 MILLIGRAM, BID
     Route: 048
     Dates: start: 20140306, end: 20140326
  9. PHOSPHOGLIV [GLYCYRRHIZIC ACID] [Concomitant]
     Dosage: UNK
  10. CEFTAZIDIME. [Concomitant]
     Active Substance: CEFTAZIDIME
     Dosage: 2000 MILLIGRAM, TID
     Route: 042
     Dates: start: 20140406
  11. TAZOBACTAM [Concomitant]
     Active Substance: TAZOBACTAM
     Dosage: 4500 MILLIGRAM, QID
     Route: 042
     Dates: start: 20140328, end: 20140405
  12. OMEPRAZOLE. [Concomitant]
     Active Substance: OMEPRAZOLE
     Dosage: UNK
  13. CIPROFLOXACIN. [Concomitant]
     Active Substance: CIPROFLOXACIN
     Dosage: 600 MILLIGRAM, BID
     Route: 042
     Dates: start: 20140328, end: 20140423
  14. MEROPENEM. [Concomitant]
     Active Substance: MEROPENEM
     Dosage: UNK
  15. FLUCONAZOLE. [Concomitant]
     Active Substance: FLUCONAZOLE
     Dosage: UNK
  16. CASPOFUNGIN [Concomitant]
     Active Substance: CASPOFUNGIN
     Dosage: 70 MILLIGRAM, QD
     Route: 042
     Dates: start: 20140306, end: 20140323
  17. REMAXOL [Concomitant]
     Dosage: UNK

REACTIONS (9)
  - Agitation [Recovered/Resolved]
  - White blood cell count decreased [Recovered/Resolved]
  - Candida test positive [Recovered/Resolved]
  - C-reactive protein increased [Recovered/Resolved]
  - Procalcitonin increased [Recovered/Resolved]
  - Respiratory failure [Recovered/Resolved]
  - Pyrexia [Recovered/Resolved]
  - Pneumothorax spontaneous [Recovered/Resolved]
  - Pseudomonas test positive [Recovered/Resolved]

NARRATIVE: CASE EVENT DATE: 20140306
